FAERS Safety Report 20054000 (Version 3)
Quarter: 2023Q2

REPORT INFORMATION
  Report Type: Spontaneous
  Country: US (occurrence: US)
  Receive Date: 20211110
  Receipt Date: 20230410
  Transmission Date: 20230722
  Serious: Yes (Other)
  Sender: FDA-Public Use
  Company Number: US-PFIZER INC-2021629809

PATIENT
  Age: 68 Year
  Sex: Female

DRUGS (1)
  1. XELJANZ XR [Suspect]
     Active Substance: TOFACITINIB CITRATE
     Dosage: 11MG TAKE 1 TABLET DAILY

REACTIONS (6)
  - Cardiac disorder [Unknown]
  - Fall [Unknown]
  - Back injury [Unknown]
  - Ear infection [Unknown]
  - Cough [Unknown]
  - Nasal congestion [Unknown]
